FAERS Safety Report 7903409-4 (Version None)
Quarter: 2011Q4

REPORT INFORMATION
  Report Type: 
  Country: None (occurrence: None)
  Receive Date: 20111108
  Receipt Date: 20111108
  Transmission Date: 20120403
  Serious: No
  Sender: FDA-Public Use
  Company Number: None

PATIENT
  Age: 44 Year
  Sex: Female

DRUGS (1)
  1. VENLAFAXINE HCL [Suspect]
     Indication: ANXIETY
     Dosage: 150 MG DAILY ORAL
     Route: 048
     Dates: start: 20110601

REACTIONS (4)
  - PRODUCT SUBSTITUTION ISSUE [None]
  - ANXIETY [None]
  - HYPERHIDROSIS [None]
  - DRUG INEFFECTIVE [None]
